FAERS Safety Report 6431575-9 (Version None)
Quarter: 2009Q4

REPORT INFORMATION
  Report Type: 
  Country: None (occurrence: None)
  Receive Date: 20091106
  Receipt Date: 20080519
  Transmission Date: 20100525
  Serious: Yes (Hospitalization)
  Sender: FDA-Public Use
  Company Number: JP-GENENTECH-260208

PATIENT
  Age: 69 Year
  Sex: Female

DRUGS (4)
  1. AVASTIN [Suspect]
     Indication: RECTAL CANCER
     Dosage: 5 MG/KG, Q2W
     Route: 041
     Dates: end: 20080304
  2. FLUOROURACIL [Concomitant]
     Indication: LARGE INTESTINE CARCINOMA
  3. ISOVORIN [Concomitant]
     Indication: LARGE INTESTINE CARCINOMA
  4. ELPLAT [Concomitant]
     Indication: DRUG USE FOR UNKNOWN INDICATION

REACTIONS (1)
  - NECROTISING FASCIITIS [None]
